FAERS Safety Report 8571877-3 (Version None)
Quarter: 2012Q3

REPORT INFORMATION
  Report Type: 
  Country: None (occurrence: None)
  Receive Date: 20120806
  Receipt Date: 20120802
  Transmission Date: 20120928
  Serious: No
  Sender: FDA-Public Use
  Company Number: US-PFIZER INC-2012188553

PATIENT
  Age: 28 Year
  Sex: Female
  Weight: 54.422 kg

DRUGS (1)
  1. GEODON [Suspect]
     Indication: MENTAL DISORDER
     Dosage: 20 MG, 1X/DAY
     Route: 048
     Dates: start: 20120728, end: 20120728

REACTIONS (4)
  - CONFUSIONAL STATE [None]
  - PALPITATIONS [None]
  - NEURALGIA [None]
  - HYPERHIDROSIS [None]
